FAERS Safety Report 6800779-5 (Version None)
Quarter: 2010Q2

REPORT INFORMATION
  Report Type: 
  Country: None (occurrence: None)
  Receive Date: 20100625
  Receipt Date: 20100616
  Transmission Date: 20101027
  Serious: Yes (Life-Threatening, Hospitalization)
  Sender: FDA-Public Use
  Company Number: 101053-1

PATIENT
  Sex: Male

DRUGS (1)
  1. ETOPOSIDE [Suspect]
     Dates: start: 20090622

REACTIONS (5)
  - APPARENT LIFE THREATENING EVENT [None]
  - HAEMOGLOBIN DECREASED [None]
  - MICROCOCCUS TEST POSITIVE [None]
  - PERICARDIAL EFFUSION [None]
  - PLEURAL EFFUSION [None]
